FAERS Safety Report 12690886 (Version 1)
Quarter: 2016Q3

REPORT INFORMATION
  Report Type: Spontaneous
  Country: JP (occurrence: JP)
  Receive Date: 20160826
  Receipt Date: 20160826
  Transmission Date: 20161109
  Serious: Yes (Other)
  Sender: FDA-Public Use
  Company Number: JP-ALLERGAN-1666777US

PATIENT
  Age: 48 Year
  Sex: Female

DRUGS (3)
  1. PREDNISOLONE. [Concomitant]
     Active Substance: PREDNISOLONE
     Indication: PRODUCT USED FOR UNKNOWN INDICATION
     Route: 047
  2. TRIAMCINOLONE UNK [Suspect]
     Active Substance: TRIAMCINOLONE
     Indication: CHORIORETINITIS
     Dosage: UNK, THREE TIMES
  3. TRIAMCINOLONE UNK [Suspect]
     Active Substance: TRIAMCINOLONE
     Indication: VITREOUS OPACITIES

REACTIONS (2)
  - Glaucoma [Recovered/Resolved]
  - Off label use [None]
